FAERS Safety Report 5451342-2 (Version None)
Quarter: 2007Q3

REPORT INFORMATION
  Report Type: 
  Country: None (occurrence: None)
  Receive Date: 20070913
  Receipt Date: 20070911
  Transmission Date: 20080115
  Serious: Yes (Other)
  Sender: FDA-Public Use
  Company Number: US-ASTRAZENECA-2007UW14418

PATIENT
  Sex: Female

DRUGS (5)
  1. SEROQUEL [Suspect]
     Route: 048
     Dates: start: 20070301
  2. TOPAMAX [Interacting]
     Dates: start: 20070101
  3. CLOZAPINE [Concomitant]
     Dates: end: 20070501
  4. ILLICIT DRUGS [Concomitant]
  5. ETOH [Concomitant]

REACTIONS (2)
  - DRUG INTERACTION [None]
  - MUSCLE CONTRACTIONS INVOLUNTARY [None]
